FAERS Safety Report 24284800 (Version 1)
Quarter: 2024Q3

REPORT INFORMATION
  Report Type: Spontaneous
  Country: US (occurrence: US)
  Receive Date: 20240905
  Receipt Date: 20240905
  Transmission Date: 20241016
  Serious: Yes (Life-Threatening, Hospitalization)
  Sender: HIKMA
  Company Number: US-MLMSERVICE-20240820-PI168013-00329-1

PATIENT
  Age: 67 Year
  Sex: Male
  Weight: 112 kg

DRUGS (2)
  1. VANCOMYCIN [Suspect]
     Active Substance: VANCOMYCIN
     Indication: Infection prophylaxis
     Dosage: 1.75 GRAM
     Route: 042
  2. SODIUM CHLORIDE [Concomitant]
     Active Substance: SODIUM CHLORIDE
     Indication: Product used for unknown indication
     Dosage: 500 MILLILITER
     Route: 042

REACTIONS (14)
  - Respiratory acidosis [Recovered/Resolved]
  - Pulmonary oedema [Recovered/Resolved]
  - Rib fracture [Unknown]
  - Atrial fibrillation [Recovered/Resolved]
  - Kounis syndrome [Recovered/Resolved]
  - Pulseless electrical activity [Recovered/Resolved]
  - Cardiac arrest [Recovered/Resolved]
  - Circulatory collapse [Recovered/Resolved]
  - Loss of consciousness [Recovered/Resolved]
  - Sternal fracture [Unknown]
  - Acute myocardial infarction [Recovered/Resolved]
  - Anaphylactic shock [Recovered/Resolved]
  - Hypokalaemia [Recovered/Resolved]
  - Lactic acidosis [Recovered/Resolved]
